FAERS Safety Report 7384816-8 (Version None)
Quarter: 2011Q1

REPORT INFORMATION
  Report Type: 
  Country: None (occurrence: None)
  Receive Date: 20110330
  Receipt Date: 20100921
  Transmission Date: 20110831
  Serious: Yes (Other)
  Sender: FDA-Public Use
  Company Number: US-BAYER-201034329NA

PATIENT
  Sex: Female
  Weight: 61.678 kg

DRUGS (12)
  1. UNCODEABLE ^UNCLASSIFIABLE^ [Concomitant]
  2. XANAX [Concomitant]
  3. PRILOSEC [Concomitant]
  4. UNCODEABLE ^UNCLASSIFIABLE^ [Concomitant]
     Dosage: UNK
     Dates: start: 20070101
  5. NSAID'S [Concomitant]
  6. YASMIN [Suspect]
     Indication: CONTRACEPTION
     Dosage: UNK
     Route: 048
     Dates: start: 20071017, end: 20081001
  7. YASMIN [Suspect]
     Dosage: UNK
     Dates: start: 20101021
  8. YASMIN [Suspect]
     Indication: PREMENSTRUAL SYNDROME
     Dosage: UNK
     Dates: start: 20090601, end: 20090901
  9. IBUPROFENO [Concomitant]
  10. ALPRAZOLAM [Concomitant]
  11. ONE A DAY [B12,D2,B3,B6,RETINOL,B2,NA+ ASCORB,B1 MONONITR] [Concomitant]
  12. STOOL SOFTENER [Concomitant]

REACTIONS (4)
  - ABDOMINAL PAIN UPPER [None]
  - ABDOMINAL PAIN [None]
  - CHOLECYSTITIS [None]
  - CHOLELITHIASIS [None]
